FAERS Safety Report 9218617 (Version 1)
Quarter: 2013Q2

REPORT INFORMATION
  Report Type: Spontaneous
  Country: US (occurrence: US)
  Receive Date: 20130409
  Receipt Date: 20130409
  Transmission Date: 20140414
  Serious: Yes (Other)
  Sender: FDA-Public Use
  Company Number: US-009507513-1304USA002892

PATIENT
  Sex: Male

DRUGS (2)
  1. INVANZ [Suspect]
  2. AMOXICILLIN [Concomitant]

REACTIONS (1)
  - Deafness [Unknown]
